FAERS Safety Report 4506994-8 (Version None)
Quarter: 2004Q4

REPORT INFORMATION
  Report Type: 
  Country: None (occurrence: None)
  Receive Date: 20041025
  Receipt Date: 20040723
  Transmission Date: 20050328
  Serious: Yes (Hospitalization)
  Sender: FDA-Public Use
  Company Number: US-JNJFOC-20040706834

PATIENT
  Age: 43 Year
  Sex: Female

DRUGS (11)
  1. INFLIXIMAB (INFLIXIMAB, RECOMBINANT) LYOPHILIZED POWDER [Suspect]
     Indication: RHEUMATOID ARTHRITIS
     Dosage: INTRAVENOUS
     Route: 042
     Dates: start: 20001229, end: 20010601
  2. METHOTREXATE [Concomitant]
  3. PROSRBA (ALL OTHER THERAPEUTIC PRODUCTS) [Concomitant]
  4. ARAVA [Concomitant]
  5. FOLIC ACID [Concomitant]
  6. CLARITIN [Concomitant]
  7. HYDROCODONE (HYDROCODONE) [Concomitant]
  8. KLONOPIN [Concomitant]
  9. POTASSIUM (POTASSIUM) [Concomitant]
  10. PREVACID [Concomitant]
  11. ACETYLSALICYLIC ACID SRT [Concomitant]

REACTIONS (1)
  - PNEUMONIA [None]
